FAERS Safety Report 8032094-9 (Version None)
Quarter: 2012Q1

REPORT INFORMATION
  Report Type: 
  Country: None (occurrence: None)
  Receive Date: 20120109
  Receipt Date: 20120104
  Transmission Date: 20120608
  Serious: Yes (Hospitalization)
  Sender: FDA-Public Use
  Company Number: US-VERTEX PHARMACEUTICALS INC.-AE-2012-000216

PATIENT
  Sex: Female
  Weight: 73.548 kg

DRUGS (18)
  1. MULITVITAMIN [Concomitant]
  2. PENTOSAN POLYSULFATE SODIUM [Concomitant]
     Route: 048
  3. ZOLEDRONIC ACID [Concomitant]
  4. ESTRADIOL [Concomitant]
     Route: 067
  5. RIZATRIPTAN [Concomitant]
     Route: 048
  6. RIBAVIRIN [Concomitant]
     Indication: HEPATITIS C
     Route: 048
     Dates: end: 20111105
  7. ESOMEPRAZOLE SODIUM [Concomitant]
     Route: 048
  8. PREGABALIN [Concomitant]
     Route: 048
  9. GLUCOSAMINE [Concomitant]
  10. TOPIRAMATE [Concomitant]
     Route: 048
  11. SERTRALINE HYDROCHLORIDE [Concomitant]
     Route: 048
  12. BUPROPION HYDROCHLORIDE [Concomitant]
     Route: 048
  13. MELOXICAM [Concomitant]
     Route: 048
  14. COZAAR [Concomitant]
  15. INCIVEK [Suspect]
     Indication: HEPATITIS C
     Route: 048
     Dates: end: 20111105
  16. PEGASYS [Concomitant]
     Indication: HEPATITIS C
     Route: 058
     Dates: end: 20111105
  17. MOMETASONE FUROATE [Concomitant]
     Route: 045
  18. NORVASC [Concomitant]

REACTIONS (2)
  - LEUKOPENIA [None]
  - ANAEMIA [None]
